FAERS Safety Report 24786797 (Version 1)
Quarter: 2024Q4

REPORT INFORMATION
  Report Type: Spontaneous
  Country: CN (occurrence: CN)
  Receive Date: 20241230
  Receipt Date: 20241230
  Transmission Date: 20250115
  Serious: Yes (Hospitalization, Other)
  Sender: Haleon PLC
  Company Number: CN-HALEON-2218258

PATIENT
  Age: 26 Year
  Sex: Female
  Weight: 76 kg

DRUGS (1)
  1. IBUPROFEN [Suspect]
     Active Substance: IBUPROFEN
     Indication: Intentional self-injury
     Route: 048
     Dates: start: 20240910, end: 20240910

REACTIONS (7)
  - Poisoning [Recovering/Resolving]
  - Toxicity to various agents [Recovering/Resolving]
  - Depression [Recovering/Resolving]
  - Mental fatigue [Recovering/Resolving]
  - Intentional overdose [Unknown]
  - Appetite disorder [Recovering/Resolving]
  - Poor quality sleep [Recovering/Resolving]

NARRATIVE: CASE EVENT DATE: 20240910
